FAERS Safety Report 8801110 (Version 1)
Quarter: 2012Q4

REPORT INFORMATION
  Report Type: Report from Study
  Country: AT (occurrence: AT)
  Receive Date: 20120921
  Receipt Date: 20120921
  Transmission Date: 20130627
  Serious: Yes (Hospitalization)
  Sender: FDA-Public Use
  Company Number: AT-AMGEN-AUTCT2012052815

PATIENT
  Age: 67 Year
  Sex: Female

DRUGS (1)
  1. DENOSUMAB [Suspect]
     Indication: BREAST CANCER
     Dosage: 60 mg, UNK
     Dates: start: 20090811

REACTIONS (1)
  - Osteoarthritis [Recovered/Resolved]
